FAERS Safety Report 5071758-6 (Version None)
Quarter: 2006Q3

REPORT INFORMATION
  Report Type: 
  Country: None (occurrence: None)
  Receive Date: 20060801
  Receipt Date: 20060717
  Transmission Date: 20061208
  Serious: Yes (Death)
  Sender: FDA-Public Use
  Company Number: AU200607003648

PATIENT
  Age: 55 Year
  Sex: Male

DRUGS (5)
  1. XIGRIS [Suspect]
     Indication: SEPSIS
     Dates: start: 20060713
  2. RANITIDINE [Concomitant]
  3. HYDROCORTISONE TAB [Concomitant]
  4. RIFAMPICIN [Concomitant]
  5. VENTOLIN [Concomitant]

REACTIONS (1)
  - DEATH [None]
